FAERS Safety Report 7645528-6 (Version None)
Quarter: 2011Q3

REPORT INFORMATION
  Report Type: 
  Country: None (occurrence: None)
  Receive Date: 20110729
  Receipt Date: 20110727
  Transmission Date: 20111222
  Serious: Yes (Hospitalization, Other)
  Sender: FDA-Public Use
  Company Number: CH-PFIZER INC-2011028721

PATIENT
  Age: 66 Year
  Sex: Male

DRUGS (1)
  1. LYRICA [Suspect]
     Dosage: UNKNOWN DOSE, 2X/DAY
     Route: 048
     Dates: start: 20101201, end: 20101222

REACTIONS (1)
  - ERYTHEMA MULTIFORME [None]
